FAERS Safety Report 4927594-1 (Version None)
Quarter: 2006Q1

REPORT INFORMATION
  Report Type: 
  Country: None (occurrence: None)
  Receive Date: 20060228
  Receipt Date: 20060221
  Transmission Date: 20060701
  Serious: Yes (Hospitalization)
  Sender: FDA-Public Use
  Company Number: DE-MERCK-0602DEU00123

PATIENT
  Age: 68 Year
  Sex: Female

DRUGS (3)
  1. FOSAMAX [Suspect]
     Indication: OSTEOPOROSIS PROPHYLAXIS
     Route: 048
     Dates: start: 20050101, end: 20050101
  2. METHYLPREDNISOLONE [Concomitant]
     Indication: PULMONARY FIBROSIS
     Route: 048
     Dates: start: 20050101
  3. DIMENHYDRINATE [Concomitant]
     Route: 065

REACTIONS (2)
  - HEPATOCELLULAR DAMAGE [None]
  - HEPATOTOXICITY [None]
